FAERS Safety Report 24432420 (Version 1)
Quarter: 2024Q4

REPORT INFORMATION
  Report Type: Spontaneous
  Country: US (occurrence: US)
  Receive Date: 20241014
  Receipt Date: 20241014
  Transmission Date: 20250114
  Serious: Yes (Other)
  Sender: BIOCODEX
  Company Number: US-BIOCODEX2-2024000066

PATIENT
  Age: 12 Year
  Sex: Female
  Weight: 41.2 kg

DRUGS (2)
  1. DIACOMIT [Suspect]
     Active Substance: STIRIPENTOL
     Indication: Severe myoclonic epilepsy of infancy
     Dosage: 250MG AND 500MG BY MOUTH IN ?TWO SEPARATE DOSES EACH DAY
     Route: 048
     Dates: start: 20230216
  2. DIACOMIT [Suspect]
     Active Substance: STIRIPENTOL
     Indication: Severe myoclonic epilepsy of infancy
     Dosage: 250MG AND 500MG BY MOUTH IN ?TWO SEPARATE DOSES EACH DAY
     Route: 048
     Dates: start: 20230216

REACTIONS (2)
  - Product dose omission issue [Unknown]
  - Seizure [Unknown]

NARRATIVE: CASE EVENT DATE: 20240116
